FAERS Safety Report 8032283-3 (Version None)
Quarter: 2012Q1

REPORT INFORMATION
  Report Type: 
  Country: None (occurrence: None)
  Receive Date: 20120110
  Receipt Date: 20120104
  Transmission Date: 20120608
  Serious: No
  Sender: FDA-Public Use
  Company Number: US-BIOGENIDEC-2012BI000565

PATIENT
  Age: 34 Year
  Sex: Female

DRUGS (2)
  1. AVONEX [Concomitant]
     Indication: MULTIPLE SCLEROSIS
     Route: 030
  2. TYSABRI [Suspect]
     Indication: MULTIPLE SCLEROSIS
     Route: 042
     Dates: start: 20111101

REACTIONS (9)
  - INFUSION SITE PAIN [None]
  - NASOPHARYNGITIS [None]
  - PERIPHERAL COLDNESS [None]
  - RESPIRATORY TRACT CONGESTION [None]
  - FATIGUE [None]
  - PRURITUS [None]
  - HEADACHE [None]
  - FEELING HOT [None]
  - FLUSHING [None]
